FAERS Safety Report 7932525-6 (Version None)
Quarter: 2011Q4

REPORT INFORMATION
  Report Type: 
  Country: None (occurrence: None)
  Receive Date: 20111122
  Receipt Date: 20111116
  Transmission Date: 20120403
  Serious: No
  Sender: FDA-Public Use
  Company Number: US-BIOGENIDEC-2011BI043800

PATIENT
  Age: 29 Year
  Sex: Female

DRUGS (2)
  1. TYSABRI [Suspect]
     Indication: MULTIPLE SCLEROSIS
     Route: 042
     Dates: start: 20110304
  2. STEROIDS [Concomitant]

REACTIONS (5)
  - MEMORY IMPAIRMENT [None]
  - VISUAL IMPAIRMENT [None]
  - PSYCHOMOTOR HYPERACTIVITY [None]
  - FATIGUE [None]
  - MULTIPLE SCLEROSIS RELAPSE [None]
